FAERS Safety Report 10680090 (Version 3)
Quarter: 2015Q1

REPORT INFORMATION
  Report Type: Spontaneous
  Country: JP (occurrence: JP)
  Receive Date: 20141229
  Receipt Date: 20150114
  Transmission Date: 20150720
  Serious: Yes (Life-Threatening, Hospitalization, Other)
  Sender: FDA-Public Use
  Company Number: JP-TEVA-530614ISR

PATIENT
  Age: 65 Year
  Sex: Male
  Weight: 52 kg

DRUGS (2)
  1. BAYASPIRIN [Suspect]
     Active Substance: ASPIRIN
     Indication: PERIPHERAL ARTERIAL OCCLUSIVE DISEASE
     Dosage: 100 MILLIGRAM DAILY;
     Route: 048
     Dates: start: 2001, end: 20141120
  2. (TS)TICLOPIDINE HYDROCHLORIDE TABLET 100MG ^TAIYO^, TAB, 100MG [Suspect]
     Active Substance: TICLOPIDINE HYDROCHLORIDE
     Indication: PERIPHERAL ARTERIAL OCCLUSIVE DISEASE
     Dosage: 200 MILLIGRAM DAILY;
     Route: 048
     Dates: start: 2001, end: 20141120

REACTIONS (3)
  - Brain stem haemorrhage [Recovered/Resolved with Sequelae]
  - Hydrocephalus [Recovered/Resolved with Sequelae]
  - Pleural effusion [Unknown]

NARRATIVE: CASE EVENT DATE: 20141120
